FAERS Safety Report 16491701 (Version 1)
Quarter: 2019Q2

REPORT INFORMATION
  Report Type: Spontaneous
  Country: US (occurrence: US)
  Receive Date: 20190628
  Receipt Date: 20190628
  Transmission Date: 20190711
  Serious: No
  Sender: FDA-Public Use
  Company Number: US-009507513-1906USA010335

PATIENT
  Sex: Male

DRUGS (3)
  1. EMEND [Suspect]
     Active Substance: APREPITANT
     Indication: LIVER DISORDER
     Dosage: 1 CAPSULE EVERY DAY
     Route: 048
     Dates: start: 201904
  2. EMEND [Suspect]
     Active Substance: APREPITANT
     Indication: CUTANEOUS T-CELL LYMPHOMA
  3. EMEND [Suspect]
     Active Substance: APREPITANT
     Indication: HEPATITIS A

REACTIONS (3)
  - Drug ineffective for unapproved indication [Unknown]
  - Off label use [Unknown]
  - Drug effective for unapproved indication [Unknown]

NARRATIVE: CASE EVENT DATE: 201904
